FAERS Safety Report 4469802-X (Version None)
Quarter: 2004Q4

REPORT INFORMATION
  Report Type: 
  Country: None (occurrence: None)
  Receive Date: 20041008
  Receipt Date: 20040917
  Transmission Date: 20050328
  Serious: Yes (Other)
  Sender: FDA-Public Use
  Company Number: US-GLAXOSMITHKLINE-A0526193A

PATIENT
  Age: 82 Year
  Sex: Female

DRUGS (6)
  1. ADVAIR DISKUS 100/50 [Suspect]
     Indication: ASTHMA
     Route: 055
  2. SPIRIVA [Concomitant]
  3. ATACAND [Concomitant]
  4. LIPITOR [Concomitant]
  5. AZOPT [Concomitant]
  6. TIMOLOL MALEATE [Concomitant]

REACTIONS (2)
  - MACULAR DEGENERATION [None]
  - VISUAL ACUITY REDUCED [None]
